FAERS Safety Report 19676855 (Version 4)
Quarter: 2021Q4

REPORT INFORMATION
  Report Type: Spontaneous
  Country: NL (occurrence: NL)
  Receive Date: 20210809
  Receipt Date: 20211020
  Transmission Date: 20220303
  Serious: Yes (Other)
  Sender: FDA-Public Use
  Company Number: NL-ALIMERA SCIENCES LIMITED-NL-A16013-21-000161

PATIENT
  Sex: Female

DRUGS (1)
  1. ILUVIEN [Suspect]
     Active Substance: FLUOCINOLONE ACETONIDE
     Indication: Uveitis
     Dosage: 0.25 MICROGRAM, QD, LEFT EYE
     Route: 031
     Dates: start: 20210603, end: 20210716

REACTIONS (4)
  - Device dislocation [Recovered/Resolved]
  - Medical device removal [Recovered/Resolved]
  - Corneal oedema [Recovered/Resolved]
  - Visual impairment [Not Recovered/Not Resolved]

NARRATIVE: CASE EVENT DATE: 20210715
